FAERS Safety Report 10733872 (Version 1)
Quarter: 2015Q1

REPORT INFORMATION
  Report Type: Spontaneous
  Country: US (occurrence: US)
  Receive Date: 20150123
  Receipt Date: 20150123
  Transmission Date: 20150721
  Serious: No
  Sender: FDA-Public Use
  Company Number: US-BAUSCH-SYM-2013-12737

PATIENT
  Sex: Male

DRUGS (1)
  1. XENAZINE [Suspect]
     Active Substance: TETRABENAZINE
     Indication: CHOREA
     Dosage: 1 TABLET NIGHTLY
     Route: 048

REACTIONS (4)
  - General physical health deterioration [Unknown]
  - Balance disorder [Unknown]
  - Anxiety [Unknown]
  - Hypotonia [Unknown]
